FAERS Safety Report 8432716-4 (Version None)
Quarter: 2012Q2

REPORT INFORMATION
  Report Type: 
  Country: None (occurrence: None)
  Receive Date: 20120323
  Receipt Date: 20110601
  Transmission Date: 20120825
  Serious: Yes (Hospitalization)
  Sender: FDA-Public Use
  Company Number: 163-21880-11060584

PATIENT
  Sex: Male

DRUGS (2)
  1. REVLIMID [Suspect]
     Indication: MULTIPLE MYELOMA
     Dosage: 25;10  MG, DAILY FOR 21 DAYS, 3X/WEEK ON MON,WED,AND FRI, PO
     Route: 048
     Dates: start: 20090506
  2. REVLIMID [Suspect]

REACTIONS (1)
  - COLITIS ISCHAEMIC [None]
